FAERS Safety Report 10159579 (Version 3)
Quarter: 2014Q4

REPORT INFORMATION
  Report Type: Spontaneous
  Country: IN (occurrence: IN)
  Receive Date: 20140508
  Receipt Date: 20141008
  Transmission Date: 20150528
  Serious: Yes (Hospitalization, Other)
  Sender: FDA-Public Use
  Company Number: PHHY2014IN048942

PATIENT
  Age: 64 Year
  Sex: Female

DRUGS (22)
  1. FIBATOR [Concomitant]
     Indication: HYPERCHOLESTEROLAEMIA
     Dosage: 10 MG, HS
     Route: 065
     Dates: start: 201202
  2. VOVERAN - SLOW RELEASE [Concomitant]
     Indication: PROCEDURAL PAIN
     Dosage: UNK UKN, UNK
     Route: 065
     Dates: start: 20140428, end: 20140505
  3. DOMPERIDONE [Concomitant]
     Active Substance: DOMPERIDONE
     Indication: NAUSEA
     Route: 065
     Dates: start: 20140428
  4. INSULIN MIXTARD [Concomitant]
     Indication: DIABETES MELLITUS
     Dosage: 32 U, UNK
     Route: 065
     Dates: start: 200201
  5. INSULIN [Concomitant]
     Active Substance: INSULIN NOS
     Indication: DIABETES MELLITUS
     Dosage: 32 U, UNK
     Route: 065
     Dates: start: 200201
  6. NEUGABA [Concomitant]
     Indication: PARTIAL SEIZURES
     Dosage: 75 MG, QD
     Route: 065
     Dates: start: 20140428
  7. LEVOFLOX [Concomitant]
     Indication: SOFT TISSUE INFECTION
  8. LASILACTONE [Concomitant]
     Active Substance: FUROSEMIDE\SPIRONOLACTONE
     Indication: FLUID RETENTION
  9. ASPIRIN. [Concomitant]
     Active Substance: ASPIRIN
     Indication: INFLAMMATION
  10. BECOSULES CAPSULE [Concomitant]
     Indication: VITAMIN SUPPLEMENTATION
     Dosage: 1 DF, QD
     Route: 065
     Dates: start: 20140428
  11. NEUGABA [Concomitant]
     Indication: EPILEPSY
  12. ACLASTA [Suspect]
     Active Substance: ZOLEDRONIC ACID
     Indication: OSTEOPOROSIS
     Dosage: 5 MG, YEARLY
     Route: 042
     Dates: start: 20130406
  13. GALVUS MET [Concomitant]
     Active Substance: METFORMIN HYDROCHLORIDE\VILDAGLIPTIN
     Indication: DIABETES MELLITUS
     Dosage: 1 DF,BID
     Route: 065
     Dates: start: 200201
  14. LASILACTONE [Concomitant]
     Active Substance: FUROSEMIDE\SPIRONOLACTONE
     Indication: CARDIAC FAILURE CONGESTIVE
     Dosage: 1 DF,QD
     Route: 065
     Dates: start: 201202
  15. SHELCAL [Concomitant]
     Indication: MINERAL SUPPLEMENTATION
     Dosage: 500 MG, BID
     Route: 065
     Dates: start: 201202
  16. DOMPERIDONE [Concomitant]
     Active Substance: DOMPERIDONE
     Indication: VOMITING
  17. LEVOFLOX [Concomitant]
     Indication: SKIN INFECTION
     Dosage: 500 MG, QD
     Route: 065
     Dates: start: 20140428, end: 20140430
  18. CLEXANE [Concomitant]
     Active Substance: ENOXAPARIN SODIUM
     Indication: THROMBOSIS
     Dosage: 0.6 ML, QD
     Route: 065
     Dates: start: 20140428, end: 20140502
  19. ASPIRIN. [Concomitant]
     Active Substance: ASPIRIN
     Indication: PAIN
     Dosage: 75 MG, QD
     Route: 065
     Dates: start: 20140428
  20. ULTRACET [Concomitant]
     Active Substance: ACETAMINOPHEN\TRAMADOL HYDROCHLORIDE
     Indication: PAIN
     Dosage: 1 DF, TDS
     Route: 065
     Dates: start: 20140428
  21. NEUGABA [Concomitant]
     Indication: FIBROMYALGIA
  22. NEUGABA [Concomitant]
     Indication: NEURALGIA

REACTIONS (16)
  - Blood glucose increased [Unknown]
  - Haemoglobin decreased [Unknown]
  - Red blood cell count decreased [Unknown]
  - Red blood cell sedimentation rate increased [Unknown]
  - Joint instability [Unknown]
  - Haematocrit decreased [Unknown]
  - Lumbar spine flattening [Unknown]
  - White blood cell count increased [Unknown]
  - Joint dislocation [Unknown]
  - Vertebral osteophyte [Unknown]
  - Arthralgia [Recovering/Resolving]
  - Red cell distribution width increased [Unknown]
  - Intervertebral disc space narrowing [Unknown]
  - Aortic calcification [Unknown]
  - Osteoarthritis [Unknown]
  - Joint crepitation [Unknown]

NARRATIVE: CASE EVENT DATE: 20140421
